FAERS Safety Report 5147769-9 (Version None)
Quarter: 2006Q4

REPORT INFORMATION
  Report Type: 
  Country: None (occurrence: None)
  Receive Date: 20061106
  Receipt Date: 20061025
  Transmission Date: 20070319
  Serious: Yes (Other)
  Sender: FDA-Public Use
  Company Number: GXKR2006BR06769

PATIENT
  Age: 33 Year
  Sex: Female
  Weight: 77 kg

DRUGS (5)
  1. OMEPROTEC (NGX) (OMEPRAZOLE), 20MG [Suspect]
     Indication: ABDOMINAL PAIN UPPER
     Dosage: 20 MG, QD, ORAL
     Route: 048
  2. FLUOXETINE [Concomitant]
  3. CAPTOPRIL [Concomitant]
  4. HYDROCHLOROTHIAZIDE [Concomitant]
  5. PROPRANOLOL [Concomitant]

REACTIONS (3)
  - FOAMING AT MOUTH [None]
  - HAEMATEMESIS [None]
  - STOMACH DISCOMFORT [None]
